FAERS Safety Report 10222399 (Version 2)
Quarter: 2014Q2

REPORT INFORMATION
  Report Type: Spontaneous
  Country: SE (occurrence: SE)
  Receive Date: 20140606
  Receipt Date: 20140606
  Transmission Date: 20141212
  Serious: Yes (Hospitalization)
  Sender: FDA-Public Use
  Company Number: SE-ACTAVIS-2013B-00923

PATIENT
  Age: 40 Year
  Sex: Female

DRUGS (2)
  1. LAMOTRIGINE [Suspect]
     Indication: BIPOLAR DISORDER
     Dosage: 50 MG, BID
     Route: 065
     Dates: start: 201305, end: 20130728
  2. LAMOTRIGINE [Suspect]
     Dosage: UNK
     Dates: start: 20130815

REACTIONS (4)
  - Musculoskeletal discomfort [Recovering/Resolving]
  - Rash [Recovering/Resolving]
  - Hypersensitivity [Recovering/Resolving]
  - Diplopia [Recovering/Resolving]
